FAERS Safety Report 5280551-0 (Version None)
Quarter: 2007Q1

REPORT INFORMATION
  Report Type: 
  Country: None (occurrence: None)
  Receive Date: 20070329
  Receipt Date: 20070319
  Transmission Date: 20070707
  Serious: Yes (Other)
  Sender: FDA-Public Use
  Company Number: 2007PK00519

PATIENT
  Age: 431 Month
  Sex: Female
  Weight: 74 kg

DRUGS (3)
  1. ZOLADEX [Suspect]
     Indication: BREAST CANCER
     Route: 058
     Dates: start: 20040401, end: 20061212
  2. AROMASIN [Concomitant]
     Indication: BREAST CANCER
     Route: 048
     Dates: start: 20040401, end: 20061129
  3. OSTAC [Concomitant]
     Indication: OSTEOPOROSIS PROPHYLAXIS
     Dosage: 1600 MG FOUR TIMES A WEEK
     Route: 048
     Dates: start: 20040401, end: 20061001

REACTIONS (1)
  - HEPATOCELLULAR DAMAGE [None]
